FAERS Safety Report 7902212-9 (Version None)
Quarter: 2011Q4

REPORT INFORMATION
  Report Type: 
  Country: None (occurrence: None)
  Receive Date: 20111108
  Receipt Date: 20111030
  Transmission Date: 20120403
  Serious: No
  Sender: FDA-Public Use
  Company Number: NZ-B.I. PHARMACEUTICALS,INC./RIDGEFIELD-2011-AU-01961AU

PATIENT
  Sex: Male

DRUGS (1)
  1. PRADAXA [Suspect]
     Route: 048
     Dates: start: 20110704, end: 20110705

REACTIONS (3)
  - FATIGUE [None]
  - BRAIN NATRIURETIC PEPTIDE INCREASED [None]
  - OEDEMA PERIPHERAL [None]
